FAERS Safety Report 11074139 (Version 2)
Quarter: 2015Q2

REPORT INFORMATION
  Report Type: Spontaneous
  Country: US (occurrence: US)
  Receive Date: 20150429
  Receipt Date: 20150603
  Transmission Date: 20150821
  Serious: No
  Sender: FDA-Public Use
  Company Number: US-TEVA-558887ACC

PATIENT
  Age: 33 Year
  Sex: Female
  Weight: 64.92 kg

DRUGS (4)
  1. ZYRTEC [Concomitant]
     Active Substance: CETIRIZINE HYDROCHLORIDE
     Indication: HYPERSENSITIVITY
     Dosage: UNKNOWN FORM STRENGTH
     Route: 065
  2. ZOLOFT [Concomitant]
     Active Substance: SERTRALINE HYDROCHLORIDE
     Indication: POSTPARTUM DEPRESSION
     Dosage: UNKNOWN FORM STRENGTH
     Route: 065
  3. PRENATAL VITAMINS [Concomitant]
     Active Substance: VITAMINS
     Indication: BREAST FEEDING
     Dosage: UNKNOWN FORM STRENGTH
     Route: 065
  4. PARAGARD T 380A [Suspect]
     Active Substance: COPPER
     Indication: CONTRACEPTION
     Route: 015
     Dates: start: 20150309, end: 20150421

REACTIONS (1)
  - Device expulsion [Recovered/Resolved]

NARRATIVE: CASE EVENT DATE: 20150421
